FAERS Safety Report 7397318-X (Version None)
Quarter: 2011Q2

REPORT INFORMATION
  Report Type: 
  Country: None (occurrence: None)
  Receive Date: 20110406
  Receipt Date: 20110331
  Transmission Date: 20111010
  Serious: Yes (Other)
  Sender: FDA-Public Use
  Company Number: US-PFIZER INC-2006051909

PATIENT
  Sex: Female

DRUGS (6)
  1. ZOLOFT [Suspect]
     Indication: DEPRESSION
     Route: 065
  2. BENADRYL [Suspect]
     Indication: DYSTONIA
     Dosage: UNK
     Route: 048
     Dates: start: 19990101
  3. NORVASC [Suspect]
     Indication: BLOOD PRESSURE ABNORMAL
     Route: 065
  4. NORVASC [Suspect]
     Indication: HYPERTENSION
  5. WARFARIN [Concomitant]
     Indication: ANTICOAGULANT THERAPY
     Route: 065
  6. NORVASC [Suspect]
     Indication: CARDIAC DISORDER

REACTIONS (5)
  - CARDIAC DISORDER [None]
  - HYPOTENSION [None]
  - BLOOD PRESSURE ABNORMAL [None]
  - DYSTONIA [None]
  - UNEVALUABLE EVENT [None]
